FAERS Safety Report 7805351-6 (Version None)
Quarter: 2011Q4

REPORT INFORMATION
  Report Type: 
  Country: None (occurrence: None)
  Receive Date: 20111010
  Receipt Date: 20111010
  Transmission Date: 20120403
  Serious: Yes (Disabling, Other)
  Sender: FDA-Public Use
  Company Number: US-BAYER-200915388NA

PATIENT
  Age: 43 Year
  Sex: Male
  Weight: 118 kg

DRUGS (18)
  1. MAGNEVIST [Suspect]
     Indication: NUCLEAR MAGNETIC RESONANCE IMAGING
  2. INSULIN [INSULIN] [Concomitant]
  3. ZEMPLAR [Concomitant]
  4. CARDIZEM [Concomitant]
  5. LOSARTAN POTASSIUM [Concomitant]
  6. OMNISCAN [Suspect]
     Dosage: 20 ML, ONCE
     Dates: start: 20060521, end: 20060521
  7. ALBUMIN (HUMAN) [Concomitant]
  8. ARANESP [Concomitant]
  9. PROHANCE [Suspect]
     Indication: NUCLEAR MAGNETIC RESONANCE IMAGING
  10. PHOSLO [Concomitant]
  11. CATAPRES [Concomitant]
  12. NEPHROCAPS [Concomitant]
  13. OMNISCAN [Suspect]
     Indication: NUCLEAR MAGNETIC RESONANCE IMAGING
     Dosage: 20 ML, ONCE
     Dates: start: 20060425, end: 20060425
  14. MULTIHANCE [Suspect]
     Indication: NUCLEAR MAGNETIC RESONANCE IMAGING
  15. PROCARDIA XL [Concomitant]
  16. OPTIMARK [Suspect]
     Indication: NUCLEAR MAGNETIC RESONANCE IMAGING
  17. PROCRIT [Concomitant]
  18. ALDACTONE [Concomitant]

REACTIONS (13)
  - SCAR [None]
  - MOBILITY DECREASED [None]
  - SKIN INDURATION [None]
  - GENERAL PHYSICAL HEALTH DETERIORATION [None]
  - SKIN TIGHTNESS [None]
  - DEFORMITY [None]
  - PAIN IN EXTREMITY [None]
  - NEPHROGENIC SYSTEMIC FIBROSIS [None]
  - DEPRESSION [None]
  - SKIN DISCOLOURATION [None]
  - FIBROSIS [None]
  - ANXIETY [None]
  - EMOTIONAL DISTRESS [None]
